FAERS Safety Report 4526364-6 (Version None)
Quarter: 2004Q4

REPORT INFORMATION
  Report Type: 
  Country: None (occurrence: None)
  Receive Date: 20041210
  Receipt Date: 20041129
  Transmission Date: 20050328
  Serious: Yes (Life-Threatening, Hospitalization)
  Sender: FDA-Public Use
  Company Number: ERP04000384

PATIENT
  Age: 16 Year
  Sex: Female

DRUGS (6)
  1. DANTRIUM [Suspect]
     Indication: MUSCLE CRAMP
     Dosage: 25 MG, DAILY, ORAL
     Route: 048
     Dates: start: 20041025, end: 20041027
  2. METHOTREXATE [Suspect]
     Indication: BONE SARCOMA
     Dosage: 12 G/M3, 1 ONLY, IV NOS
     Route: 042
     Dates: start: 20041026, end: 20041026
  3. ONDANSETRON HYDROCHLORIDE [Concomitant]
  4. FLUCONAZOLE [Concomitant]
  5. SOLU-MEDROL [Concomitant]
  6. NUBAIN [Concomitant]

REACTIONS (16)
  - BLOOD FIBRINOGEN INCREASED [None]
  - BONE MARROW DEPRESSION [None]
  - CONVULSION [None]
  - CYTOLYTIC HEPATITIS [None]
  - DRUG INTERACTION [None]
  - DRUG LEVEL INCREASED [None]
  - HEADACHE [None]
  - HEPATIC FAILURE [None]
  - NEUROLOGICAL SYMPTOM [None]
  - OEDEMA [None]
  - PROTEIN TOTAL INCREASED [None]
  - PROTHROMBIN TIME SHORTENED [None]
  - RENAL FAILURE [None]
  - THROMBOCYTOPENIA [None]
  - VISUAL DISTURBANCE [None]
  - WEIGHT INCREASED [None]
